FAERS Safety Report 7174974-2 (Version None)
Quarter: 2010Q4

REPORT INFORMATION
  Report Type: 
  Country: None (occurrence: None)
  Receive Date: 20101220
  Receipt Date: 20100408
  Transmission Date: 20110411
  Serious: No
  Sender: FDA-Public Use
  Company Number: US-AMGEN-TCS404674

PATIENT

DRUGS (1)
  1. ENBREL [Suspect]
     Indication: RHEUMATOID ARTHRITIS
     Dosage: 25 MG, 2 TIMES/WK
     Route: 058
     Dates: start: 20021201

REACTIONS (6)
  - BUNION [None]
  - FOOT DEFORMITY [None]
  - HYPERKERATOSIS [None]
  - HYPERTENSION [None]
  - LOCALISED INFECTION [None]
  - OEDEMA PERIPHERAL [None]
